FAERS Safety Report 20659613 (Version 1)
Quarter: 2022Q1

REPORT INFORMATION
  Report Type: Spontaneous
  Country: US (occurrence: None)
  Receive Date: 20220331
  Receipt Date: 20220331
  Transmission Date: 20220423
  Serious: Yes (Other)
  Sender: FDA-Public Use
  Company Number: None

PATIENT
  Age: 33 Year
  Sex: Female
  Weight: 58.5 kg

DRUGS (1)
  1. SUBOXONE [Suspect]
     Active Substance: BUPRENORPHINE HYDROCHLORIDE\NALOXONE HYDROCHLORIDE
     Indication: Drug use disorder
     Dosage: OTHER QUANTITY : 28 FILMS;?FREQUENCY : TWICE A DAY;?
     Route: 060
     Dates: start: 20121114, end: 20210130

REACTIONS (6)
  - Dental caries [None]
  - Tooth fracture [None]
  - Tooth discolouration [None]
  - Tooth fracture [None]
  - Tooth loss [None]
  - Pain [None]
